FAERS Safety Report 9388291 (Version 1)
Quarter: 2013Q3

REPORT INFORMATION
  Report Type: Spontaneous
  Country: US (occurrence: US)
  Receive Date: 20130708
  Receipt Date: 20130708
  Transmission Date: 20140515
  Serious: No
  Sender: FDA-Public Use
  Company Number: US-PFIZER INC-2013197413

PATIENT
  Age: 78 Year
  Sex: Male

DRUGS (3)
  1. ATORVASTATIN CALCIUM [Suspect]
     Dosage: UNK
  2. ATENOLOL [Suspect]
     Dosage: 50 MG, UNK
  3. HYDROCHLOROTHIAZIDE [Suspect]
     Dosage: 10 MG, UNK

REACTIONS (1)
  - Blood pressure increased [Unknown]
